FAERS Safety Report 6572190-6 (Version None)
Quarter: 2010Q1

REPORT INFORMATION
  Report Type: 
  Country: None (occurrence: None)
  Receive Date: 20100205
  Receipt Date: 20100127
  Transmission Date: 20100710
  Serious: Yes (Hospitalization)
  Sender: FDA-Public Use
  Company Number: PHEH2009US16516

PATIENT
  Sex: Female

DRUGS (2)
  1. EXJADE [Suspect]
     Indication: SICKLE CELL ANAEMIA
     Dosage: 1000 MG, QD
     Route: 048
  2. DILAUDID [Concomitant]

REACTIONS (4)
  - HAEMATURIA [None]
  - HAEMOGLOBIN DECREASED [None]
  - RENAL PAPILLARY NECROSIS [None]
  - VOMITING [None]
